FAERS Safety Report 6113721-X (Version None)
Quarter: 2009Q1

REPORT INFORMATION
  Report Type: 
  Country: None (occurrence: None)
  Receive Date: 20090312
  Receipt Date: 20090304
  Transmission Date: 20090719
  Serious: Yes (Hospitalization)
  Sender: FDA-Public Use
  Company Number: FR-WYE-H08538109

PATIENT
  Sex: Male

DRUGS (7)
  1. CORDARONE [Suspect]
     Dosage: 200MG TABLET, DOSE AND FREQUENCY NOT SPECIFIED
     Route: 048
     Dates: start: 20070201, end: 20080701
  2. PREVISCAN [Concomitant]
     Dosage: DOSE AND FREQUENCY NOT SPECIFIED
     Route: 048
  3. SEROPLEX [Concomitant]
     Dosage: 0.5 DF ONCE DAILY
     Route: 048
  4. LASIX [Concomitant]
     Route: 048
  5. OMEPRAZOLE [Concomitant]
     Route: 048
  6. DILTIAZEM HYDROCHLORIDE [Concomitant]
     Route: 048
  7. LEVOTHYROXINE SODIUM [Concomitant]
     Route: 048

REACTIONS (1)
  - PLEURAL EFFUSION [None]
